FAERS Safety Report 4943202-8 (Version None)
Quarter: 2006Q1

REPORT INFORMATION
  Report Type: 
  Country: None (occurrence: None)
  Receive Date: 20060314
  Receipt Date: 20060306
  Transmission Date: 20060701
  Serious: Yes (Death, Hospitalization)
  Sender: FDA-Public Use
  Company Number: CM-MERCK-0603USA00908

PATIENT
  Age: 43 Year
  Sex: Male

DRUGS (1)
  1. STROMECTOL [Suspect]
     Route: 048
     Dates: start: 20051207, end: 20051207

REACTIONS (10)
  - ANOREXIA [None]
  - ASTHENIA [None]
  - BLOOD SMEAR TEST ABNORMAL [None]
  - COMA [None]
  - CONJUNCTIVAL HAEMORRHAGE [None]
  - HEMIPLEGIA [None]
  - MALNUTRITION [None]
  - ORAL INTAKE REDUCED [None]
  - PRURITUS [None]
  - PYREXIA [None]
